FAERS Safety Report 17840043 (Version 1)
Quarter: 2020Q2

REPORT INFORMATION
  Report Type: Spontaneous
  Country: US (occurrence: US)
  Receive Date: 20200529
  Receipt Date: 20200529
  Transmission Date: 20200714
  Serious: No
  Sender: FDA-Public Use
  Company Number: US-ACCORD-138105

PATIENT
  Age: 70 Year
  Sex: Male

DRUGS (1)
  1. CLONAZEPAM ACCORD [Suspect]
     Active Substance: CLONAZEPAM
     Indication: PRODUCT USED FOR UNKNOWN INDICATION
     Dosage: DOSE: 1 MG THREE TIMES DAILY

REACTIONS (1)
  - Drug screen negative [Unknown]

NARRATIVE: CASE EVENT DATE: 201906
